FAERS Safety Report 8476943 (Version 3)
Quarter: 2013Q2

REPORT INFORMATION
  Report Type: Report from Study
  Country: DE (occurrence: DE)
  Receive Date: 20120326
  Receipt Date: 20130415
  Transmission Date: 20140414
  Serious: Yes (Hospitalization)
  Sender: FDA-Public Use
  Company Number: DE-CELGENEUS-062-21660-12031362

PATIENT
  Age: 78 Year
  Sex: Female
  Weight: 76 kg

DRUGS (4)
  1. ABRAXANE [Suspect]
     Indication: BREAST CANCER
     Route: 041
     Dates: start: 20120223, end: 20120301
  2. CAPECITABINE [Suspect]
     Indication: BREAST CANCER
     Dosage: 3500 MILLIGRAM
     Route: 048
     Dates: start: 20120223, end: 201203
  3. BISOPROLOL [Concomitant]
     Indication: PRODUCT USED FOR UNKNOWN INDICATION
     Route: 065
  4. NOVALGIN [Concomitant]
     Indication: ABDOMINAL PAIN LOWER
     Dosage: 2.5 GRAM
     Route: 065
     Dates: start: 20120307, end: 201203

REACTIONS (2)
  - General physical health deterioration [Recovering/Resolving]
  - Abdominal pain lower [Recovering/Resolving]
